FAERS Safety Report 19263504 (Version 1)
Quarter: 2021Q2

REPORT INFORMATION
  Report Type: Spontaneous
  Country: NL (occurrence: NL)
  Receive Date: 20210517
  Receipt Date: 20210517
  Transmission Date: 20210717
  Serious: Yes (Disabling)
  Sender: FDA-Public Use
  Company Number: NL-TEVA-2021-NL-1911317

PATIENT
  Sex: Female
  Weight: 100 kg

DRUGS (1)
  1. FLUOXETINE DISPERTABLET 20MG / BRAND NAME NOT SPECIFIED [Suspect]
     Active Substance: FLUOXETINE HYDROCHLORIDE
     Indication: PANIC DISORDER
     Dosage: 30 MILLIGRAM DAILY; THERAPY END DATE : ASKU
     Dates: start: 2011

REACTIONS (2)
  - Therapeutic response unexpected [Unknown]
  - Tension [Not Recovered/Not Resolved]
